FAERS Safety Report 5524433-5 (Version None)
Quarter: 2007Q4

REPORT INFORMATION
  Report Type: 
  Country: None (occurrence: None)
  Receive Date: 20071122
  Receipt Date: 20071113
  Transmission Date: 20080405
  Serious: Yes (Hospitalization)
  Sender: FDA-Public Use
  Company Number: US-JNJFOC-20071105374

PATIENT
  Sex: Male
  Weight: 71.67 kg

DRUGS (11)
  1. FENTANYL TRANSDERMAL SYSTEM [Suspect]
     Indication: CARDIAC DISORDER
     Route: 062
  2. FENTANYL TRANSDERMAL SYSTEM [Suspect]
     Indication: LUNG DISORDER
     Route: 062
  3. FUROSEMIDE [Concomitant]
     Route: 048
  4. FUROSEMIDE [Concomitant]
     Route: 048
  5. PREDNISONE TAB [Concomitant]
     Route: 048
  6. ISORBID [Concomitant]
     Route: 048
  7. OMEPRAZOLE [Concomitant]
     Route: 048
  8. PLAVIX [Concomitant]
     Route: 048
  9. CITALOPRAM [Concomitant]
     Route: 048
  10. ASPIRIN [Concomitant]
     Route: 048
  11. HYDROCODONE BITARTRATE [Concomitant]
     Route: 048

REACTIONS (2)
  - MYOCARDIAL INFARCTION [None]
  - WITHDRAWAL SYNDROME [None]
